FAERS Safety Report 4845518-2 (Version None)
Quarter: 2005Q4

REPORT INFORMATION
  Report Type: 
  Country: None (occurrence: None)
  Receive Date: 20051205
  Receipt Date: 20051107
  Transmission Date: 20060501
  Serious: Yes (Hospitalization, Other)
  Sender: FDA-Public Use
  Company Number: PHBS2005JP16499

PATIENT
  Age: 57 Year
  Sex: Female

DRUGS (2)
  1. PREDONINE [Suspect]
     Indication: DERMATOMYOSITIS
     Dosage: 15 MG/D
     Route: 048
     Dates: start: 20030301
  2. NEORAL [Suspect]
     Indication: DERMATOMYOSITIS
     Dosage: UNK, UNK
     Route: 048
     Dates: start: 20030301

REACTIONS (4)
  - DEEP VEIN THROMBOSIS [None]
  - DYSPNOEA EXERTIONAL [None]
  - HYPOXIA [None]
  - PULMONARY EMBOLISM [None]
